FAERS Safety Report 4515660-4 (Version None)
Quarter: 2004Q4

REPORT INFORMATION
  Report Type: 
  Country: None (occurrence: None)
  Receive Date: 20040930
  Receipt Date: 20040730
  Transmission Date: 20050328
  Serious: No
  Sender: FDA-Public Use
  Company Number: USA-2004-0016232

PATIENT
  Sex: Female

DRUGS (3)
  1. SPECTRACEF [Suspect]
     Indication: SINUSITIS
     Dosage: 1 TABLET, BID,
  2. NORVASC [Concomitant]
  3. VITAMIN B-12 [Concomitant]

REACTIONS (3)
  - ERYTHEMA [None]
  - FAECES DISCOLOURED [None]
  - OFF LABEL USE [None]
